FAERS Safety Report 5686440-1 (Version None)
Quarter: 2008Q1

REPORT INFORMATION
  Report Type: 
  Country: None (occurrence: None)
  Receive Date: 20080328
  Receipt Date: 20070711
  Transmission Date: 20080703
  Serious: No
  Sender: FDA-Public Use
  Company Number: US-BAYER-US-2007-025731

PATIENT
  Age: 30 Year
  Sex: Female
  Weight: 59 kg

DRUGS (2)
  1. MIRENA [Suspect]
     Indication: CONTRACEPTION
     Route: 015
     Dates: start: 20070507
  2. NACOM - SLOW RELEASE [Concomitant]

REACTIONS (3)
  - MENOMETRORRHAGIA [None]
  - POST PROCEDURAL HAEMORRHAGE [None]
  - VAGINAL ODOUR [None]
